FAERS Safety Report 6007013-7 (Version None)
Quarter: 2008Q4

REPORT INFORMATION
  Report Type: 
  Country: None (occurrence: None)
  Receive Date: 20081217
  Receipt Date: 20071220
  Transmission Date: 20090506
  Serious: No
  Sender: FDA-Public Use
  Company Number: US-ASTRAZENECA-2007UW28736

PATIENT
  Sex: Female
  Weight: 63.5 kg

DRUGS (2)
  1. CRESTOR [Suspect]
     Indication: BLOOD CHOLESTEROL INCREASED
     Dosage: SAMPLE PACK
     Route: 048
     Dates: start: 20071201
  2. MULTI-VITAMINS [Concomitant]

REACTIONS (1)
  - HYPOACUSIS [None]
